FAERS Safety Report 4263603-3 (Version None)
Quarter: 2004Q1

REPORT INFORMATION
  Report Type: 
  Country: None (occurrence: None)
  Receive Date: 20040102
  Receipt Date: 20031229
  Transmission Date: 20041129
  Serious: Yes (Death)
  Sender: FDA-Public Use
  Company Number: 2003UW15803

PATIENT
  Age: 64 Year
  Sex: Female
  Weight: 61.2356 kg

DRUGS (5)
  1. IRESSA [Suspect]
     Indication: NON-SMALL CELL LUNG CANCER
     Dosage: 250 MG PO
     Route: 048
     Dates: start: 20031128
  2. PREVACID [Concomitant]
  3. ZYRTEC [Concomitant]
  4. XANAX [Concomitant]
  5. VIOXX [Concomitant]

REACTIONS (2)
  - DYSPNOEA [None]
  - FATIGUE [None]
